FAERS Safety Report 7329014-9 (Version None)
Quarter: 2011Q1

REPORT INFORMATION
  Report Type: 
  Country: None (occurrence: None)
  Receive Date: 20110303
  Receipt Date: 20110222
  Transmission Date: 20110831
  Serious: Yes (Hospitalization)
  Sender: FDA-Public Use
  Company Number: BR-ASTRAZENECA-2010SE29818

PATIENT
  Age: 64 Year
  Sex: Male

DRUGS (3)
  1. BETALOR [Concomitant]
  2. ATACAND HCT [Suspect]
     Dosage: 16/12.5 MGS BID
     Route: 048
     Dates: start: 20070101
  3. ASA [Concomitant]

REACTIONS (3)
  - CORONARY ANGIOPLASTY [None]
  - VENOUS OCCLUSION [None]
  - BLOOD CHOLESTEROL INCREASED [None]
